FAERS Safety Report 18305145 (Version 1)
Quarter: 2020Q3

REPORT INFORMATION
  Report Type: Spontaneous
  Country: US (occurrence: US)
  Receive Date: 20200923
  Receipt Date: 20200923
  Transmission Date: 20201103
  Serious: No
  Sender: FDA-Public Use
  Company Number: US-BAYER-2020-202448

PATIENT
  Age: 30 Year
  Sex: Female

DRUGS (1)
  1. SKYLA [Suspect]
     Active Substance: LEVONORGESTREL
     Indication: CONTRACEPTION
     Dosage: 14 ?G PER DAY,CONTINUOUSLY
     Route: 015
     Dates: start: 20170101, end: 201901

REACTIONS (4)
  - Constipation [Recovered/Resolved with Sequelae]
  - Dyspnoea [None]
  - Anal fissure [None]
  - Haemorrhoids [None]

NARRATIVE: CASE EVENT DATE: 201709
